FAERS Safety Report 5520339-6 (Version None)
Quarter: 2007Q4

REPORT INFORMATION
  Report Type: 
  Country: None (occurrence: None)
  Receive Date: 20071119
  Receipt Date: 20071112
  Transmission Date: 20080405
  Serious: Yes (Hospitalization)
  Sender: FDA-Public Use
  Company Number: ES-WYE-H01198407

PATIENT
  Age: 61 Year
  Sex: Female

DRUGS (3)
  1. TRANGOREX [Suspect]
     Indication: ATRIAL FIBRILLATION
     Route: 048
     Dates: start: 20070201
  2. ATENOLOL [Concomitant]
     Indication: RENAL HYPERTENSION
     Route: 048
     Dates: start: 20070201
  3. SINTROM [Interacting]
     Indication: THROMBOSIS PROPHYLAXIS
     Route: 048
     Dates: start: 20070201

REACTIONS (2)
  - DRUG INTERACTION [None]
  - HAEMATURIA [None]
